FAERS Safety Report 16233916 (Version 1)
Quarter: 2019Q2

REPORT INFORMATION
  Report Type: Spontaneous
  Country: CA (occurrence: CA)
  Receive Date: 20190424
  Receipt Date: 20190424
  Transmission Date: 20190711
  Serious: Yes (Life-Threatening, Hospitalization, Other)
  Sender: FDA-Public Use
  Company Number: CA-BAYER-2019-079066

PATIENT
  Age: 59 Year
  Sex: Male
  Weight: 113.38 kg

DRUGS (1)
  1. GADOVIST [Suspect]
     Active Substance: GADOBUTROL
     Dosage: 10 ML
     Route: 042

REACTIONS (6)
  - Pallor [Unknown]
  - Foaming at mouth [Unknown]
  - Resuscitation [Unknown]
  - Sensory disturbance [Unknown]
  - Sneezing [Unknown]
  - Pulse absent [Unknown]
